FAERS Safety Report 15747909 (Version 3)
Quarter: 2019Q1

REPORT INFORMATION
  Report Type: Spontaneous
  Country: US (occurrence: US)
  Receive Date: 20181221
  Receipt Date: 20190111
  Transmission Date: 20190417
  Serious: Yes (Other)
  Sender: FDA-Public Use
  Company Number: US-LUPIN HEALTHCARE (UK) LIMITED-2018-08708

PATIENT
  Age: 32 Year
  Sex: Female
  Weight: 90.7 kg

DRUGS (1)
  1. LISINOPRIL TABLETS USP, 20MG [Suspect]
     Active Substance: LISINOPRIL
     Indication: HYPERTENSION
     Dosage: 20 MG, QD
     Route: 048
     Dates: start: 20181204, end: 20181204

REACTIONS (10)
  - Speech disorder [Recovered/Resolved]
  - Migraine [Unknown]
  - Lip swelling [Recovered/Resolved]
  - Rash pruritic [Recovered/Resolved]
  - Anaphylactic shock [Recovered/Resolved]
  - Eye swelling [Recovered/Resolved]
  - Lip erythema [Recovered/Resolved]
  - Vomiting [Unknown]
  - Paraesthesia oral [Recovered/Resolved]
  - Dyspnoea [Recovered/Resolved]

NARRATIVE: CASE EVENT DATE: 20181204
